FAERS Safety Report 8598999-5 (Version None)
Quarter: 2012Q3

REPORT INFORMATION
  Report Type: 
  Country: None (occurrence: None)
  Receive Date: 20120806
  Receipt Date: 20120806
  Transmission Date: 20120928
  Serious: Yes (Other)
  Sender: FDA-Public Use
  Company Number: None

PATIENT
  Sex: Male
  Weight: 110.2241 kg

DRUGS (1)
  1. VICTOZA [Suspect]
     Dates: start: 20111208, end: 20120727

REACTIONS (1)
  - RASH [None]
